FAERS Safety Report 5959177-9 (Version None)
Quarter: 2008Q4

REPORT INFORMATION
  Report Type: 
  Country: None (occurrence: None)
  Receive Date: 20081120
  Receipt Date: 20080519
  Transmission Date: 20090506
  Serious: No
  Sender: FDA-Public Use
  Company Number: A0727254A

PATIENT
  Age: 42 Year
  Sex: Male

DRUGS (5)
  1. BUPROPION HYDROCHLORIDE [Suspect]
     Indication: DRUG USE FOR UNKNOWN INDICATION
     Dosage: 100MG PER DAY
     Route: 048
     Dates: start: 20080417
  2. BUPROPION HYDROCHLORIDE [Suspect]
     Dosage: 100MG PER DAY
     Route: 048
  3. PROPRANOLOL [Concomitant]
  4. ZYPREXA [Concomitant]
  5. CLONAZEPAM [Concomitant]

REACTIONS (1)
  - MEDICATION RESIDUE [None]
